FAERS Safety Report 9300447 (Version 1)
Quarter: 2013Q2

REPORT INFORMATION
  Report Type: Spontaneous
  Country: DE (occurrence: DE)
  Receive Date: 20130521
  Receipt Date: 20130521
  Transmission Date: 20140414
  Serious: Yes (Other)
  Sender: FDA-Public Use
  Company Number: DE-ELI_LILLY_AND_COMPANY-DE201210005295

PATIENT
  Sex: Female

DRUGS (10)
  1. FORSTEO [Suspect]
     Indication: OSTEOPOROSIS
     Dosage: UNK, QD
     Route: 058
     Dates: start: 20120818, end: 20121017
  2. FORSTEO [Suspect]
     Dosage: UNK, QD
     Route: 058
  3. MARCUMAR [Concomitant]
     Dosage: UNK, EACH EVENING
     Route: 065
  4. BELOC ZOK [Concomitant]
     Dosage: 45 MG, UNKNOWN
     Route: 065
  5. COAPROVEL [Concomitant]
     Dosage: 12.5 MG, EACH MORNING
     Route: 065
  6. CLOPIDOGREL [Concomitant]
     Dosage: UNK, UNKNOWN
     Route: 065
  7. CORTISON [Concomitant]
     Dosage: 2 MG, EACH MORNING
     Route: 065
  8. CRESTOR [Concomitant]
     Dosage: UNK, EACH EVENING
     Route: 065
  9. VIGANTOLETTEN [Concomitant]
     Dosage: 1000 IU, UNKNOWN
     Route: 065
  10. DULCOLAX [Concomitant]
     Dosage: UNK, UNKNOWN
     Route: 065

REACTIONS (9)
  - Atrial fibrillation [Not Recovered/Not Resolved]
  - Burning sensation [Recovered/Resolved]
  - Pruritus generalised [Recovered/Resolved]
  - Burning sensation [Recovered/Resolved]
  - Myalgia [Recovered/Resolved]
  - Blood creatine phosphokinase increased [Recovered/Resolved]
  - Hypoaesthesia [Not Recovered/Not Resolved]
  - Spinal disorder [Not Recovered/Not Resolved]
  - Gait disturbance [Not Recovered/Not Resolved]
